FAERS Safety Report 7946680-5 (Version None)
Quarter: 2011Q4

REPORT INFORMATION
  Report Type: 
  Country: None (occurrence: None)
  Receive Date: 20111129
  Receipt Date: 20111121
  Transmission Date: 20120403
  Serious: Yes (Other)
  Sender: FDA-Public Use
  Company Number: CHNY2011DK000473

PATIENT
  Sex: Female

DRUGS (1)
  1. NICOTINE [Suspect]
     Indication: SMOKING CESSATION THERAPY
     Dosage: UNK

REACTIONS (4)
  - EXTRASYSTOLES [None]
  - TOOTH DISORDER [None]
  - JAW DISORDER [None]
  - DRUG DEPENDENCE [None]
